FAERS Safety Report 9359795 (Version 2)
Quarter: 2013Q3

REPORT INFORMATION
  Report Type: Spontaneous
  Country: AT (occurrence: AT)
  Receive Date: 20130621
  Receipt Date: 20130703
  Transmission Date: 20140515
  Serious: Yes (Other)
  Sender: FDA-Public Use
  Company Number: AT-AMGEN-AUTSP2013042691

PATIENT
  Age: 75 Year
  Sex: Female
  Weight: 70 kg

DRUGS (10)
  1. VECTIBIX [Suspect]
     Indication: COLORECTAL CANCER METASTATIC
     Dosage: 6 MG/KG, Q2WK
     Route: 042
     Dates: start: 20130208
  2. VECTIBIX [Suspect]
     Indication: METASTASES TO LIVER
  3. NEULASTA [Suspect]
     Indication: COLORECTAL CANCER METASTATIC
     Dosage: 6 MG, 1X/CT
     Route: 058
     Dates: start: 20130208
  4. NEULASTA [Suspect]
     Indication: METASTASES TO LIVER
  5. 5-FU                               /00098801/ [Concomitant]
     Indication: COLORECTAL CANCER METASTATIC
     Dosage: 400/BOLUS 600MG
     Route: 042
     Dates: start: 20130208
  6. 5-FU                               /00098801/ [Concomitant]
     Indication: METASTASES TO LIVER
  7. IRINOTECAN [Concomitant]
     Indication: COLORECTAL CANCER METASTATIC
     Dosage: 200 MG/M2, UNK
     Dates: start: 20130208
  8. IRINOTECAN [Concomitant]
     Indication: METASTASES TO LIVER
  9. CA FOLINAT [Concomitant]
     Indication: COLORECTAL CANCER METASTATIC
     Dosage: 180 MG/M2, UNK
     Route: 042
     Dates: start: 20130208
  10. CA FOLINAT [Concomitant]
     Indication: METASTASES TO LIVER

REACTIONS (2)
  - Skin reaction [Not Recovered/Not Resolved]
  - Drug interaction [Not Recovered/Not Resolved]
